FAERS Safety Report 10414871 (Version 1)
Quarter: 2014Q3

REPORT INFORMATION
  Report Type: Spontaneous
  Country: US (occurrence: None)
  Receive Date: 20140827
  Receipt Date: 20140827
  Transmission Date: 20150326
  Serious: No
  Sender: FDA-Public Use
  Company Number: None

PATIENT
  Sex: Female
  Weight: 73.94 kg

DRUGS (2)
  1. DULOXETINE 60MG CITRON [Suspect]
     Active Substance: DULOXETINE
     Indication: DEPRESSION
     Dosage: 60MG DAILY PO?EARLY SUMMER 2014
     Route: 048
     Dates: start: 2014
  2. DULOXETINE 60MG CITRON [Suspect]
     Active Substance: DULOXETINE
     Indication: FIBROMYALGIA
     Dosage: 60MG DAILY PO?EARLY SUMMER 2014
     Route: 048
     Dates: start: 2014

REACTIONS (2)
  - Fibromyalgia [None]
  - Depression [None]

NARRATIVE: CASE EVENT DATE: 2014
